FAERS Safety Report 4763706-0 (Version None)
Quarter: 2005Q3

REPORT INFORMATION
  Report Type: 
  Country: None (occurrence: None)
  Receive Date: 20050908
  Receipt Date: 20050825
  Transmission Date: 20060218
  Serious: Yes (Hospitalization)
  Sender: FDA-Public Use
  Company Number: FR-GLAXOSMITHKLINE-B0391920A

PATIENT
  Age: 69 Year
  Sex: Male

DRUGS (10)
  1. DEROXAT [Suspect]
     Indication: DEPRESSION
     Dosage: 20MG PER DAY
     Route: 048
  2. KARDEGIC [Suspect]
     Indication: DRUG USE FOR UNKNOWN INDICATION
     Dosage: 160MG PER DAY
     Route: 048
     Dates: end: 20050331
  3. PREVISCAN [Suspect]
     Indication: ATRIAL FIBRILLATION
     Dosage: 20MG PER DAY
     Route: 048
     Dates: end: 20050331
  4. COZAAR [Concomitant]
     Indication: HYPERTENSION
     Dosage: 50MG PER DAY
     Route: 048
  5. DIGOXIN [Concomitant]
     Indication: ATRIAL FIBRILLATION
     Dosage: .125MG PER DAY
     Route: 048
  6. SECTRAL [Concomitant]
     Indication: HYPERTENSION
     Dosage: 400MG PER DAY
     Route: 048
  7. MEMANTINE [Concomitant]
     Dosage: 2TAB PER DAY
     Route: 048
  8. OMEPRAZOLE [Concomitant]
     Dosage: 20MG PER DAY
     Route: 048
  9. DITROPAN [Concomitant]
     Dosage: 2TAB PER DAY
     Route: 048
  10. ARCALION [Concomitant]
     Dosage: 3TAB PER DAY
     Route: 048
     Dates: end: 20050331

REACTIONS (8)
  - BLOOD PRESSURE INCREASED [None]
  - DIFFICULTY IN WALKING [None]
  - DISORIENTATION [None]
  - DRUG INTERACTION [None]
  - ENCEPHALOPATHY [None]
  - HAEMORRHAGIC STROKE [None]
  - HEMIPARESIS [None]
  - PSYCHOMOTOR RETARDATION [None]
